FAERS Safety Report 21529321 (Version 3)
Quarter: 2024Q2

REPORT INFORMATION
  Report Type: Report from Study
  Country: US (occurrence: US)
  Receive Date: 20221031
  Receipt Date: 20240610
  Transmission Date: 20240716
  Serious: Yes (Other)
  Sender: FDA-Public Use
  Company Number: US-ABBVIE-4179800

PATIENT
  Sex: Female

DRUGS (5)
  1. HUMIRA [Suspect]
     Active Substance: ADALIMUMAB
     Indication: Rheumatoid arthritis
     Dosage: FORM STRENGTH: 40 MG
     Route: 058
  2. HUMIRA [Suspect]
     Active Substance: ADALIMUMAB
     Route: 058
  3. MODERNA COVID-19 VACCINE [Concomitant]
     Active Substance: ELASOMERAN
     Indication: COVID-19 immunisation
     Dosage: FIRST DOSE?FREQUENCY-ONE IN ONCE
     Route: 030
     Dates: start: 20210317, end: 20210317
  4. MODERNA COVID-19 VACCINE [Concomitant]
     Active Substance: ELASOMERAN
     Indication: COVID-19 immunisation
     Dosage: SECOND DOSE?FREQUENCY-ONE IN ONCE
     Route: 030
     Dates: start: 20210414, end: 20210414
  5. MODERNA COVID-19 VACCINE [Concomitant]
     Active Substance: ELASOMERAN
     Indication: COVID-19 immunisation
     Dosage: THIRD/BOOSTER DOSE?FREQUENCY-ONE IN ONCE
     Route: 030
     Dates: start: 20220922, end: 20220922

REACTIONS (6)
  - Neck surgery [Unknown]
  - Decreased immune responsiveness [Not Recovered/Not Resolved]
  - Limb operation [Unknown]
  - Spinal operation [Unknown]
  - SARS-CoV-2 test positive [Unknown]
  - Dupuytren^s contracture [Unknown]

NARRATIVE: CASE EVENT DATE: 20210101
